FAERS Safety Report 10432626 (Version 1)
Quarter: 2014Q3

REPORT INFORMATION
  Report Type: Spontaneous
  Country: US (occurrence: US)
  Receive Date: 20140905
  Receipt Date: 20140905
  Transmission Date: 20150326
  Serious: No
  Sender: FDA-Public Use
  Company Number: US-ASTRAZENECA-2014SE62811

PATIENT
  Age: 59 Year
  Sex: Male
  Weight: 93 kg

DRUGS (4)
  1. RHINOCORT AQUA [Suspect]
     Active Substance: BUDESONIDE
     Indication: SEASONAL ALLERGY
     Dosage: 32 MCG,TWO SPRAYS PER NARE DAILY
     Route: 045
  2. RHINOCORT AQUA [Suspect]
     Active Substance: BUDESONIDE
     Indication: SEASONAL ALLERGY
     Dosage: GENERIC 32 MCG, TWO SPRAYS PER NARES DAILY
     Route: 045
     Dates: start: 201406
  3. RHINOCORT AQUA [Suspect]
     Active Substance: BUDESONIDE
     Indication: SEASONAL ALLERGY
     Dosage: 32 MCG, ONE SPRAY PER NARE DAILY
     Route: 045
  4. FOLIC ACID. [Concomitant]
     Active Substance: FOLIC ACID
     Indication: FOLATE DEFICIENCY
     Route: 048
     Dates: start: 2009

REACTIONS (10)
  - Nasal dryness [Unknown]
  - Nasal congestion [Unknown]
  - Circumstance or information capable of leading to medication error [Unknown]
  - Intentional product misuse [Unknown]
  - Dyspnoea [Unknown]
  - Sinus disorder [Unknown]
  - Feeling abnormal [Unknown]
  - Insomnia [Unknown]
  - Epistaxis [Unknown]
  - Nasopharyngitis [Unknown]
